FAERS Safety Report 5677841-6 (Version None)
Quarter: 2008Q1

REPORT INFORMATION
  Report Type: 
  Country: None (occurrence: None)
  Receive Date: 20080312
  Receipt Date: 20080228
  Transmission Date: 20080703
  Serious: No
  Sender: FDA-Public Use
  Company Number: WSDF_00711

PATIENT
  Age: 17 Year
  Sex: Female

DRUGS (4)
  1. WINRHO [Suspect]
     Indication: IDIOPATHIC THROMBOCYTOPENIC PURPURA
     Dosage: 75 UG/KG ONCE IV
     Route: 042
     Dates: start: 20080219, end: 20080219
  2. ACETAMINOPHEN [Concomitant]
  3. DIPHENHYDRAMINE HCL [Concomitant]
  4. PREDNISONE TAB [Concomitant]

REACTIONS (14)
  - BLOOD URINE PRESENT [None]
  - DISSEMINATED INTRAVASCULAR COAGULATION [None]
  - FATIGUE [None]
  - HAEMOGLOBIN DECREASED [None]
  - HEADACHE [None]
  - INTRAVASCULAR HAEMOLYSIS [None]
  - MYALGIA [None]
  - NAUSEA [None]
  - PAIN IN EXTREMITY [None]
  - PARAESTHESIA [None]
  - PLATELET COUNT DECREASED [None]
  - SERUM SICKNESS [None]
  - VIRAL INFECTION [None]
  - VOMITING [None]
